FAERS Safety Report 20066616 (Version 1)
Quarter: 2021Q4

REPORT INFORMATION
  Report Type: Spontaneous
  Country: GB (occurrence: GB)
  Receive Date: 20211115
  Receipt Date: 20211115
  Transmission Date: 20220303
  Serious: No
  Sender: FDA-Public Use
  Company Number: None

PATIENT

DRUGS (2)
  1. PREGABALIN [Suspect]
     Active Substance: PREGABALIN
     Indication: Pain
     Dosage: 50 MILLIGRAM, TID
     Route: 048
     Dates: start: 20210811
  2. TESTOSTERONE [Concomitant]
     Active Substance: TESTOSTERONE
     Indication: Ill-defined disorder
     Dosage: UNK
     Route: 065

REACTIONS (2)
  - Abnormal dreams [Not Recovered/Not Resolved]
  - Sleep disorder [Recovered/Resolved]
